FAERS Safety Report 6942863-1 (Version None)
Quarter: 2010Q3

REPORT INFORMATION
  Report Type: 
  Country: None (occurrence: None)
  Receive Date: 20100826
  Receipt Date: 20100812
  Transmission Date: 20110219
  Serious: Yes (Other)
  Sender: FDA-Public Use
  Company Number: GB-ELI_LILLY_AND_COMPANY-GB201008003615

PATIENT
  Age: 80 Year
  Sex: Female

DRUGS (1)
  1. DULOXETINE HYDROCHLORIDE [Suspect]
     Dosage: 30 MG, UNKNOWN
     Route: 065

REACTIONS (3)
  - ANXIETY [None]
  - DECREASED APPETITE [None]
  - PANIC ATTACK [None]
